FAERS Safety Report 18105856 (Version 7)
Quarter: 2021Q1

REPORT INFORMATION
  Report Type: Spontaneous
  Country: JP (occurrence: JP)
  Receive Date: 20200804
  Receipt Date: 20210127
  Transmission Date: 20210419
  Serious: Yes (Death, Hospitalization)
  Sender: FDA-Public Use
  Company Number: JP-ASTELLAS-2020JP005979

PATIENT
  Age: 75 Year
  Sex: Male
  Weight: 44 kg

DRUGS (17)
  1. BETANIS [Concomitant]
     Active Substance: MIRABEGRON
     Indication: DYSURIA
     Route: 048
     Dates: start: 20190910, end: 20200815
  2. LYRICA [Concomitant]
     Active Substance: PREGABALIN
     Indication: SPINAL LIGAMENT OSSIFICATION
     Route: 048
     Dates: start: 20190910, end: 20200815
  3. FLUCONAZOLE. [Concomitant]
     Active Substance: FLUCONAZOLE
     Indication: ORAL CANDIDIASIS
     Route: 048
     Dates: start: 20190911, end: 20200424
  4. LINZESS [Concomitant]
     Active Substance: LINACLOTIDE
     Indication: CONSTIPATION
     Dosage: 0.25 MG, ONCE DAILY
     Route: 048
     Dates: start: 20200323, end: 20200815
  5. BETANIS [Concomitant]
     Active Substance: MIRABEGRON
     Indication: HYPERTONIC BLADDER
  6. AZACITIDINE. [Concomitant]
     Active Substance: AZACITIDINE
     Indication: ACUTE MYELOID LEUKAEMIA
     Dosage: UNK UNK, UNKNOWN FREQ.
     Route: 065
     Dates: start: 2019
  7. MAGMITT [Concomitant]
     Active Substance: MAGNESIUM OXIDE
     Indication: CONSTIPATION
     Route: 048
     Dates: start: 20190910, end: 20200815
  8. AMITIZA [Concomitant]
     Active Substance: LUBIPROSTONE
     Indication: CONSTIPATION
     Route: 048
     Dates: start: 20190929, end: 20200815
  9. K?SUPPLY [Concomitant]
     Active Substance: POTASSIUM CHLORIDE
     Indication: HYPOKALAEMIA
     Route: 048
     Dates: start: 20190913, end: 20200726
  10. MIYA?BM [Concomitant]
     Active Substance: CLOSTRIDIUM BUTYRICUM SPORES STRAIN M-55
     Indication: GASTROENTERITIS
     Route: 048
     Dates: start: 20191005, end: 20200815
  11. XOSPATA [Suspect]
     Active Substance: GILTERITINIB
     Indication: ACUTE MYELOID LEUKAEMIA REFRACTORY
     Dosage: UNK UNK, UNKNOWN FREQ.
     Route: 048
     Dates: start: 201909
  12. SODIUM RABEPRAZOLE [Concomitant]
     Active Substance: RABEPRAZOLE SODIUM
     Indication: GASTROOESOPHAGEAL REFLUX DISEASE
     Route: 048
     Dates: start: 20190910, end: 20200815
  13. NAFTOPIDIL [Concomitant]
     Active Substance: NAFTOPIDIL
     Indication: DYSURIA
     Route: 048
     Dates: start: 20190910, end: 20200815
  14. ZALUTIA [Concomitant]
     Active Substance: TADALAFIL
     Indication: DYSURIA
     Route: 048
     Dates: start: 20190910, end: 20200815
  15. LUPRAC [Concomitant]
     Active Substance: TORSEMIDE
     Indication: OEDEMA
     Route: 048
     Dates: start: 20191113, end: 20200815
  16. XOSPATA [Suspect]
     Active Substance: GILTERITINIB
     Route: 048
     Dates: start: 20200331, end: 20200824
  17. LINZESS [Concomitant]
     Active Substance: LINACLOTIDE
     Indication: CONSTIPATION

REACTIONS (2)
  - Pyrexia [Recovering/Resolving]
  - Pyrexia [Unknown]

NARRATIVE: CASE EVENT DATE: 20200409
